FAERS Safety Report 5678243-9 (Version None)
Quarter: 2008Q1

REPORT INFORMATION
  Report Type: 
  Country: None (occurrence: None)
  Receive Date: 20080319
  Receipt Date: 20080312
  Transmission Date: 20080703
  Serious: Yes (Death, Hospitalization)
  Sender: FDA-Public Use
  Company Number: 151-21880-08030732

PATIENT
  Sex: Male

DRUGS (3)
  1. REVLIMID [Suspect]
     Indication: MULTIPLE MYELOMA
     Dosage: ORAL
     Route: 048
     Dates: start: 20071201, end: 20071201
  2. DEXAMETHASONE TAB [Concomitant]
  3. ANTICOAGULANTS (ANTICOAGULANT SODIUM CITRATE) [Concomitant]

REACTIONS (2)
  - LEUKOPENIA [None]
  - PNEUMONIA [None]
